FAERS Safety Report 24825466 (Version 1)
Quarter: 2025Q1

REPORT INFORMATION
  Report Type: Spontaneous
  Country: TW (occurrence: TW)
  Receive Date: 20250109
  Receipt Date: 20250109
  Transmission Date: 20250408
  Serious: Yes (Other)
  Sender: PFIZER
  Company Number: TW-PFIZER INC-PV202500000049

PATIENT
  Age: 81 Year
  Sex: Female

DRUGS (3)
  1. OXALIPLATIN [Suspect]
     Active Substance: OXALIPLATIN
     Indication: Colorectal cancer metastatic
     Dates: start: 202001, end: 202007
  2. FLUOROURACIL SODIUM [Suspect]
     Active Substance: FLUOROURACIL SODIUM
     Indication: Colorectal cancer metastatic
     Dates: start: 202001, end: 202007
  3. LEUCOVORIN [Suspect]
     Active Substance: LEUCOVORIN\LEUCOVORIN CALCIUM
     Indication: Colorectal cancer metastatic
     Dates: start: 202001, end: 202007

REACTIONS (1)
  - Neuropathy peripheral [Unknown]
